FAERS Safety Report 18841713 (Version 1)
Quarter: 2021Q1

REPORT INFORMATION
  Report Type: Spontaneous
  Country: GB (occurrence: GB)
  Receive Date: 20210203
  Receipt Date: 20210203
  Transmission Date: 20210419
  Serious: Yes (Hospitalization, Other)
  Sender: FDA-Public Use
  Company Number: GB-SA-2021SA032146

PATIENT
  Age: 89 Year
  Sex: Male
  Weight: 150 kg

DRUGS (2)
  1. PLAVIX [Suspect]
     Active Substance: CLOPIDOGREL BISULFATE
     Dosage: UNK
     Route: 065
  2. HUMIRA [Suspect]
     Active Substance: ADALIMUMAB
     Indication: RHEUMATOID ARTHRITIS
     Dosage: 40 MG
     Route: 058

REACTIONS (10)
  - Peripheral artery stent insertion [Unknown]
  - Cardiac disorder [Unknown]
  - Myocardial infarction [Not Recovered/Not Resolved]
  - Loss of personal independence in daily activities [Unknown]
  - Post procedural swelling [Not Recovered/Not Resolved]
  - Contusion [Unknown]
  - Fall [Unknown]
  - Hypertension [Unknown]
  - Coronary arterial stent insertion [Unknown]
  - Diabetes mellitus [Unknown]

NARRATIVE: CASE EVENT DATE: 2011
